FAERS Safety Report 4663039-7 (Version None)
Quarter: 2005Q2

REPORT INFORMATION
  Report Type: 
  Country: None (occurrence: None)
  Receive Date: 20050513
  Receipt Date: 20050505
  Transmission Date: 20051028
  Serious: Yes (Death)
  Sender: FDA-Public Use
  Company Number: ENT 2005-0058

PATIENT
  Age: 76 Year
  Sex: Male

DRUGS (7)
  1. COMTESS (ENTACAPONE) [Suspect]
     Indication: PARKINSON'S DISEASE
     Dosage: 600 MG ORAL
     Route: 048
     Dates: start: 20050207, end: 20050429
  2. AMANTADINE HCL [Concomitant]
  3. MADOPAR [Concomitant]
  4. BERLIPRIL [Concomitant]
  5. ASPIRIN [Concomitant]
  6. PROSTAMOL [Concomitant]
  7. SERMION [Concomitant]

REACTIONS (11)
  - ARRHYTHMIA [None]
  - ATHEROSCLEROSIS [None]
  - BLOOD PRESSURE SYSTOLIC INCREASED [None]
  - CARDIAC FAILURE [None]
  - DYSPHAGIA [None]
  - DYSPNOEA [None]
  - ENCEPHALOPATHY [None]
  - FALL [None]
  - ISCHAEMIC STROKE [None]
  - SUDDEN DEATH [None]
  - TONGUE DRY [None]
